FAERS Safety Report 4473794-7 (Version None)
Quarter: 2004Q3

REPORT INFORMATION
  Report Type: 
  Country: None (occurrence: None)
  Receive Date: 20040917
  Receipt Date: 20040618
  Transmission Date: 20050211
  Serious: Yes (Other)
  Sender: FDA-Public Use
  Company Number: US-JNJFOC-20040603649

PATIENT
  Age: 37 Year
  Sex: Female
  Weight: 82.5547 kg

DRUGS (5)
  1. ORTHO TRI-CYCLEN LO [Suspect]
     Indication: CONTRACEPTION
     Dosage: 1 DOSE(S), 1 IN 1 DAY, ORAL
     Route: 048
     Dates: start: 20040411
  2. ALLEGRA D (UNSPECIFIED) ALLEGRA-D [Concomitant]
  3. VIOXX (UNSPECIFIED) ROFECOXIB [Concomitant]
  4. NEXIUM [Concomitant]
  5. PARACETAMOL / DIPHENHYDRAMINE (TYLENOL PM) [Concomitant]

REACTIONS (2)
  - DRUG EXPOSURE DURING PREGNANCY [None]
  - PREGNANCY ON ORAL CONTRACEPTIVE [None]
